FAERS Safety Report 16190309 (Version 1)
Quarter: 2019Q2

REPORT INFORMATION
  Report Type: Spontaneous
  Country: US (occurrence: US)
  Receive Date: 20190412
  Receipt Date: 20190412
  Transmission Date: 20190711
  Serious: No
  Sender: FDA-Public Use
  Company Number: US-PFIZER INC-2019127425

PATIENT
  Age: 84 Year
  Sex: Female

DRUGS (2)
  1. INSULIN [Concomitant]
     Active Substance: INSULIN NOS
     Dosage: UNK
  2. SUTENT [Suspect]
     Active Substance: SUNITINIB MALATE
     Dosage: UNK

REACTIONS (1)
  - Neoplasm progression [Unknown]
